FAERS Safety Report 19427251 (Version 1)
Quarter: 2021Q2

REPORT INFORMATION
  Report Type: Spontaneous
  Country: DE (occurrence: DE)
  Receive Date: 20210617
  Receipt Date: 20210617
  Transmission Date: 20210717
  Serious: Yes (Congenital Anomaly)
  Sender: FDA-Public Use
  Company Number: DE-TEVA-2021-DE-1922602

PATIENT
  Age: 0 Year
  Sex: Female

DRUGS (6)
  1. L?THYROXIN [Concomitant]
     Active Substance: LEVOTHYROXINE SODIUM
     Indication: AUTOIMMUNE THYROIDITIS
     Dosage: 150 [UG / D (UP TO 125)]
     Route: 064
     Dates: start: 20191224, end: 20200922
  2. PAROXETIN [Suspect]
     Active Substance: PAROXETINE HYDROCHLORIDE
     Indication: DEPRESSION
     Dosage: 15 [MG/D (7.5?7.5?0) ] 2 SEPARATED DOSES
     Route: 064
     Dates: start: 20191224, end: 20200922
  3. SCHUSSLER SALZE NR. 7 [Concomitant]
     Indication: SELF-MEDICATION
     Route: 064
  4. GAVISCON [Concomitant]
     Active Substance: ALUMINUM HYDROXIDE\MAGNESIUM CARBONATE
     Indication: DYSPEPSIA
     Route: 064
  5. PRAMIPEXOLE. [Suspect]
     Active Substance: PRAMIPEXOLE
     Indication: RESTLESS LEGS SYNDROME
     Dosage: .52 MILLIGRAM DAILY;  (0?1?0)
     Route: 064
     Dates: start: 20191224, end: 20200922
  6. METOPROLOL. [Concomitant]
     Active Substance: METOPROLOL
     Indication: GESTATIONAL HYPERTENSION
     Route: 064

REACTIONS (2)
  - Ventricular septal defect [Unknown]
  - Foetal exposure during pregnancy [Unknown]

NARRATIVE: CASE EVENT DATE: 20191224
